FAERS Safety Report 8852199 (Version 1)
Quarter: 2012Q4

REPORT INFORMATION
  Report Type: 
  Country: JP (occurrence: JP)
  Receive Date: 20121022
  Receipt Date: 20121022
  Transmission Date: 20130627
  Serious: Yes (Other)
  Sender: FDA-Public Use
  Company Number: JP-PFIZER INC-2012262570

PATIENT
  Age: 76 Year
  Sex: Male

DRUGS (1)
  1. JZOLOFT [Suspect]
     Dosage: UNK

REACTIONS (1)
  - Interstitial lung disease [Unknown]
